FAERS Safety Report 6098872-0 (Version None)
Quarter: 2009Q1

REPORT INFORMATION
  Report Type: 
  Country: None (occurrence: None)
  Receive Date: 20090302
  Receipt Date: 20090220
  Transmission Date: 20090719
  Serious: Yes (Disabling)
  Sender: FDA-Public Use
  Company Number: B0560709A

PATIENT
  Age: 6 Year
  Sex: Male
  Weight: 20 kg

DRUGS (4)
  1. SERETIDE [Suspect]
     Indication: ASTHMA
     Dosage: 2PUFF PER DAY
     Route: 055
     Dates: start: 20050101, end: 20070920
  2. NASONEX [Suspect]
     Indication: ASTHMA
     Route: 065
     Dates: end: 20070920
  3. VENTOLIN [Concomitant]
     Indication: ASTHMA
     Route: 055
  4. SINGULAIR [Concomitant]
     Indication: ASTHMA
     Route: 048

REACTIONS (3)
  - ADRENAL INSUFFICIENCY [None]
  - GROWTH RETARDATION [None]
  - OFF LABEL USE [None]
